FAERS Safety Report 19974844 (Version 3)
Quarter: 2022Q1

REPORT INFORMATION
  Report Type: Spontaneous
  Country: US (occurrence: US)
  Receive Date: 20211020
  Receipt Date: 20220214
  Transmission Date: 20220423
  Serious: No
  Sender: FDA-Public Use
  Company Number: US-BRISTOL-MYERS SQUIBB COMPANY-BMS-2021-109063

PATIENT
  Age: 38 Year
  Sex: Female

DRUGS (1)
  1. ORENCIA [Suspect]
     Active Substance: ABATACEPT
     Indication: Spinal osteoarthritis
     Dosage: 125 MG/ML, QWK
     Route: 058
     Dates: start: 20211019

REACTIONS (2)
  - Nausea [Unknown]
  - Intentional product use issue [Unknown]
